FAERS Safety Report 16160871 (Version 1)
Quarter: 2019Q2

REPORT INFORMATION
  Report Type: Spontaneous
  Country: US (occurrence: US)
  Receive Date: 20190405
  Receipt Date: 20190405
  Transmission Date: 20190711
  Serious: Yes (Other)
  Sender: FDA-Public Use
  Company Number: US-CIPLA LTD.-2019US01820

PATIENT

DRUGS (5)
  1. CLONIDINE. [Suspect]
     Active Substance: CLONIDINE
     Indication: FRAGILE X SYNDROME
     Dosage: 0.2 MILLIGRAM, AT BED TIME
     Route: 065
  2. SERTRALINE [Suspect]
     Active Substance: SERTRALINE HYDROCHLORIDE
     Indication: FRAGILE X SYNDROME
     Dosage: 100 MILLIGRAM, UNK
     Route: 065
  3. METHYLPHENIDATE HYDROCHLORIDE. [Suspect]
     Active Substance: METHYLPHENIDATE HYDROCHLORIDE
     Indication: FRAGILE X SYNDROME
     Dosage: 60 MILLIGRAM, QD (ONCE DAILY)
     Route: 065
  4. ARIPIPRAZOLE. [Suspect]
     Active Substance: ARIPIPRAZOLE
     Indication: FRAGILE X SYNDROME
     Dosage: 2.5 MILLIGRAM, UNK
     Route: 065
  5. MINOCYCLINE [Suspect]
     Active Substance: MINOCYCLINE\MINOCYCLINE HYDROCHLORIDE
     Indication: FRAGILE X SYNDROME
     Dosage: 200 MILLIGRAM
     Route: 065

REACTIONS (1)
  - Drug ineffective [Unknown]
